FAERS Safety Report 4456205-7 (Version None)
Quarter: 2004Q3

REPORT INFORMATION
  Report Type: 
  Country: None (occurrence: None)
  Receive Date: 20040920
  Receipt Date: 20040909
  Transmission Date: 20050211
  Serious: Yes (Hospitalization)
  Sender: FDA-Public Use
  Company Number: 2004233143GB

PATIENT
  Age: 69 Year
  Sex: Female

DRUGS (7)
  1. ZYVOX [Suspect]
     Indication: STAPHYLOCOCCAL INFECTION
     Dosage: 600 MG, BID, ORAL
     Route: 048
     Dates: start: 20040812, end: 20040822
  2. BENDROFLUAZIDE [Concomitant]
  3. GLICLAZIDE (GLICLAZIDE) [Concomitant]
  4. ACETYLSALICYLIC ACID [Concomitant]
  5. DEXAMETHASONE [Concomitant]
  6. VENLAFAXINE [Concomitant]
  7. ATORVASTATIN (ATORVASTATIN) [Concomitant]

REACTIONS (1)
  - RASH PUSTULAR [None]
